FAERS Safety Report 6901000-X (Version None)
Quarter: 2010Q3

REPORT INFORMATION
  Report Type: 
  Country: None (occurrence: None)
  Receive Date: 20100803
  Receipt Date: 20100726
  Transmission Date: 20110219
  Serious: Yes (Other)
  Sender: FDA-Public Use
  Company Number: B0668237A

PATIENT
  Age: 16 Year
  Sex: Female

DRUGS (2)
  1. PAROXETINE HCL [Suspect]
     Indication: DEPRESSION
     Dosage: 40MG TWICE PER DAY
     Route: 048
     Dates: start: 20100713, end: 20100722
  2. EUGYNON [Concomitant]

REACTIONS (8)
  - AGGRESSION [None]
  - AGITATION [None]
  - CONFUSIONAL STATE [None]
  - DIZZINESS [None]
  - PARAESTHESIA [None]
  - PRURITUS [None]
  - SUICIDAL IDEATION [None]
  - SYNCOPE [None]
